FAERS Safety Report 20249586 (Version 1)
Quarter: 2021Q4

REPORT INFORMATION
  Report Type: Spontaneous
  Country: US (occurrence: US)
  Receive Date: 20211229
  Receipt Date: 20211229
  Transmission Date: 20220303
  Serious: No
  Sender: FDA-Public Use
  Company Number: US-PFIZER INC-202101289054

PATIENT
  Age: 64 Year
  Sex: Female

DRUGS (2)
  1. IBRANCE [Interacting]
     Active Substance: PALBOCICLIB
     Dosage: 100 MG
     Dates: start: 20210604
  2. OXYCODONE [Interacting]
     Active Substance: OXYCODONE
     Dosage: UNK

REACTIONS (1)
  - Drug interaction [Unknown]
